FAERS Safety Report 9298781 (Version 1)
Quarter: 2013Q2

REPORT INFORMATION
  Report Type: Spontaneous
  Country: IT (occurrence: IT)
  Receive Date: 20130520
  Receipt Date: 20130520
  Transmission Date: 20140414
  Serious: Yes (Other)
  Sender: FDA-Public Use
  Company Number: IT-GLAXOSMITHKLINE-B0892835A

PATIENT
  Age: 78 Year
  Sex: Female

DRUGS (1)
  1. EUTIMIL [Suspect]
     Indication: DEPRESSION
     Route: 048
     Dates: start: 20130319, end: 20130320

REACTIONS (2)
  - Hypertensive crisis [Recovering/Resolving]
  - Asthenia [Recovering/Resolving]
